FAERS Safety Report 16991740 (Version 1)
Quarter: 2019Q4

REPORT INFORMATION
  Report Type: Spontaneous
  Country: US (occurrence: US)
  Receive Date: 20191104
  Receipt Date: 20191104
  Transmission Date: 20200122
  Serious: No
  Sender: FDA-Public Use
  Company Number: US-ROCHE-2219248

PATIENT
  Sex: Male

DRUGS (2)
  1. PULMOZYME [Suspect]
     Active Substance: DORNASE ALFA
     Indication: BACTERIAL DISEASE CARRIER
     Dosage: 1 MG ML,  INHALE VIA NEBULIZER
     Route: 055
  2. ADVAIR HFA [Concomitant]
     Active Substance: FLUTICASONE PROPIONATE\SALMETEROL XINAFOATE
     Dosage: AER 100/50
     Route: 065

REACTIONS (2)
  - Vitamin A decreased [Not Recovered/Not Resolved]
  - Decreased appetite [Not Recovered/Not Resolved]
